FAERS Safety Report 14909321 (Version 2)
Quarter: 2018Q2

REPORT INFORMATION
  Report Type: Report from Study
  Country: AU (occurrence: AU)
  Receive Date: 20180517
  Receipt Date: 20180601
  Transmission Date: 20180711
  Serious: Yes (Hospitalization)
  Sender: FDA-Public Use
  Company Number: AU-EXELIXIS-XL18418013995

PATIENT
  Age: 41 Year
  Sex: Male
  Weight: 82 kg

DRUGS (10)
  1. IPILIMUMAB [Suspect]
     Active Substance: IPILIMUMAB
     Indication: RENAL CELL CARCINOMA
     Dosage: 83 MG, UNK
     Route: 042
     Dates: start: 20180131, end: 20180131
  2. TEMAZEPAM. [Concomitant]
     Active Substance: TEMAZEPAM
  3. ACYCLOVIR. [Concomitant]
     Active Substance: ACYCLOVIR
  4. BETAMETHASONE. [Concomitant]
     Active Substance: BETAMETHASONE
  5. CABOZANTINIB [Suspect]
     Active Substance: CABOZANTINIB
     Dosage: 40 MG, UNK
     Route: 048
     Dates: start: 20180404, end: 20180419
  6. NIVOLUMAB [Suspect]
     Active Substance: NIVOLUMAB
     Indication: RENAL CELL CARCINOMA
     Dosage: 247 MG, UNK
     Route: 042
     Dates: start: 20180131
  7. PREDNISOLONE. [Suspect]
     Active Substance: PREDNISOLONE
  8. CABOZANTINIB [Suspect]
     Active Substance: CABOZANTINIB
     Indication: RENAL CELL CARCINOMA
     Dosage: 40 MG, UNK
     Route: 048
     Dates: start: 20180131
  9. PANTOPRAZOLE [Concomitant]
     Active Substance: PANTOPRAZOLE
  10. BACTRIM [Concomitant]
     Active Substance: SULFAMETHOXAZOLE\TRIMETHOPRIM

REACTIONS (1)
  - Myocardial infarction [Not Recovered/Not Resolved]

NARRATIVE: CASE EVENT DATE: 20180502
